FAERS Safety Report 10383353 (Version 2)
Quarter: 2014Q3

REPORT INFORMATION
  Report Type: Spontaneous
  Country: GB (occurrence: GB)
  Receive Date: 20140814
  Receipt Date: 20140814
  Transmission Date: 20150326
  Serious: Yes (Death)
  Sender: FDA-Public Use
  Company Number: GB-RANBAXY-2014RR-80308

PATIENT

DRUGS (19)
  1. DIAZEPAM. [Concomitant]
     Active Substance: DIAZEPAM
     Indication: PRODUCT USED FOR UNKNOWN INDICATION
     Dosage: 40 MG DAILY
     Route: 048
  2. GABAPENTIN. [Concomitant]
     Active Substance: GABAPENTIN
     Indication: PRODUCT USED FOR UNKNOWN INDICATION
     Dosage: 800 MG, TID
     Route: 048
  3. PARACETAMOL [Concomitant]
     Active Substance: ACETAMINOPHEN
     Dosage: 1 G FOUR TIMES DAILY
     Route: 048
  4. CITALOPRAM [Suspect]
     Active Substance: CITALOPRAM HYDROBROMIDE
     Indication: DEPRESSION
     Dosage: 20 MG, TID
     Route: 048
     Dates: start: 2002
  5. DIAZEPAM. [Concomitant]
     Active Substance: DIAZEPAM
     Dosage: 10 MG FOUR TIMES DAILY
     Route: 048
  6. CODEINE TABLETS [Suspect]
     Active Substance: CODEINE
     Dosage: 60 MG FOUR TIMES DAILY
     Route: 048
     Dates: end: 20120809
  7. SIMVASTATIN. [Concomitant]
     Active Substance: SIMVASTATIN
     Indication: PRODUCT USED FOR UNKNOWN INDICATION
     Dosage: 40 MG ONCE DAILY
     Route: 048
  8. GABAPENTIN. [Concomitant]
     Active Substance: GABAPENTIN
     Dosage: 800 MG THREE TIMES DAILY
     Route: 048
  9. VITAMIN B COMPOUND STRONG [Concomitant]
     Indication: PRODUCT USED FOR UNKNOWN INDICATION
     Dosage: 1 TABLET DAILY
     Route: 048
  10. CITALOPRAM [Suspect]
     Active Substance: CITALOPRAM HYDROBROMIDE
     Indication: PANIC DISORDER
     Dosage: UNK
     Route: 065
  11. QUININE SULPHATE [Suspect]
     Active Substance: QUININE SULFATE
     Indication: ANALGESIC THERAPY
     Dosage: 200 MG, QD
     Route: 048
  12. PARACETAMOL [Concomitant]
     Active Substance: ACETAMINOPHEN
     Indication: PAIN
     Dosage: 1000 MG, QID
     Route: 048
  13. SILDENAFIL CITRATE. [Concomitant]
     Active Substance: SILDENAFIL CITRATE
     Indication: PRODUCT USED FOR UNKNOWN INDICATION
     Dosage: HALF TO ONE TABLET ONE HOUR BEFORE PLANNED ACTIVITY, AS REQUIRED
     Route: 065
  14. VITAMIN B COMPOUND STRONG [Concomitant]
     Dosage: 1 TABLET DAILY
     Route: 048
  15. CODEINE TABLETS [Suspect]
     Active Substance: CODEINE
     Indication: PAIN
     Dosage: UNSPECIFIED OVERDOSE
     Route: 048
     Dates: start: 20120810, end: 20120810
  16. QUININE SULPHATE [Suspect]
     Active Substance: QUININE SULFATE
     Indication: ANALGESIC THERAPY
  17. SIMVASTATIN. [Concomitant]
     Active Substance: SIMVASTATIN
     Dosage: 40 MG ONCE DAILY
     Route: 048
  18. AMITRIPTYLINE [Suspect]
     Active Substance: AMITRIPTYLINE
     Indication: ANALGESIC THERAPY
     Dosage: 25 MG, BID (50 MG DAILY TAKEN AT NIGHT)
     Route: 048
  19. CODEINE [Suspect]
     Active Substance: CODEINE
     Indication: PAIN
     Dosage: 60 MG, QID
     Route: 048
     Dates: end: 20120809

REACTIONS (8)
  - Fall [None]
  - Malaise [None]
  - Drug interaction [Fatal]
  - Overdose [Unknown]
  - Cardiac arrest [Fatal]
  - Prescribed overdose [Unknown]
  - Presyncope [Fatal]
  - Arrhythmia [None]

NARRATIVE: CASE EVENT DATE: 20120810
